FAERS Safety Report 5929802-7 (Version None)
Quarter: 2008Q4

REPORT INFORMATION
  Report Type: 
  Country: None (occurrence: None)
  Receive Date: 20081024
  Receipt Date: 20081015
  Transmission Date: 20090506
  Serious: Yes (Other)
  Sender: FDA-Public Use
  Company Number: US-PFIZER INC-2008086805

PATIENT
  Sex: Male
  Weight: 75 kg

DRUGS (4)
  1. LIPITOR [Suspect]
     Indication: MYOCARDIAL INFARCTION
     Dates: start: 20060101, end: 20080701
  2. EFFEXOR [Concomitant]
  3. ACETYLSALICYLIC ACID SRT [Concomitant]
  4. TOPROL-XL [Concomitant]

REACTIONS (3)
  - ABASIA [None]
  - FATIGUE [None]
  - PAIN IN EXTREMITY [None]
